FAERS Safety Report 9850113 (Version 2)
Quarter: 2014Q1

REPORT INFORMATION
  Report Type: Report from Study
  Country: MX (occurrence: MX)
  Receive Date: 20140128
  Receipt Date: 20140128
  Transmission Date: 20141002
  Serious: Yes (Other)
  Sender: FDA-Public Use
  Company Number: PHHY2014MX009793

PATIENT
  Age: 63 Year
  Sex: Female
  Weight: 51.5 kg

DRUGS (6)
  1. MIFLONIDE [Suspect]
     Dosage: 2 DF, QD
     Route: 055
     Dates: start: 201311
  2. ONBREZ [Suspect]
     Dosage: 1 DF, QD
     Route: 055
     Dates: start: 201310
  3. ONBREZ [Suspect]
     Dosage: 1 DF, QD
     Route: 055
  4. SEEBRI BREEZHALER [Suspect]
     Dosage: 1 DF, QD
  5. CLONAZEPAM [Concomitant]
     Indication: INSOMNIA
     Dosage: 1 DF, QD
  6. LOSARTAN [Concomitant]
     Indication: BLOOD PRESSURE
     Dosage: 2 DF, QD

REACTIONS (7)
  - Lung disorder [Not Recovered/Not Resolved]
  - Dysphonia [Not Recovered/Not Resolved]
  - Malaise [Recovering/Resolving]
  - Ear pain [Recovering/Resolving]
  - Aphonia [Recovering/Resolving]
  - Oropharyngeal pain [Recovering/Resolving]
  - Weight decreased [Recovered/Resolved]
